FAERS Safety Report 19856928 (Version 1)
Quarter: 2021Q3

REPORT INFORMATION
  Report Type: Spontaneous
  Country: US (occurrence: US)
  Receive Date: 20210920
  Receipt Date: 20210920
  Transmission Date: 20211014
  Serious: Yes (Other)
  Sender: FDA-Public Use
  Company Number: NVSC2021US209281

PATIENT
  Age: 55 Year
  Sex: Male

DRUGS (17)
  1. MYCOPHENOLATE MOFETIL. [Concomitant]
     Active Substance: MYCOPHENOLATE MOFETIL
     Indication: IMMUNOSUPPRESSANT DRUG THERAPY
  2. TACROLIMUS. [Concomitant]
     Active Substance: TACROLIMUS
     Indication: HEART TRANSPLANT
     Dosage: 0.5 MG, BID
     Route: 048
  3. MILRINONE [Concomitant]
     Active Substance: MILRINONE
     Indication: REHABILITATION THERAPY
     Dosage: 0.2 MCG/KG/MIN
     Route: 065
  4. LACTATED RINGERS SOLUTION [Concomitant]
     Active Substance: CALCIUM CHLORIDE\POTASSIUM CHLORIDE\SODIUM CHLORIDE\SODIUM LACTATE
     Indication: SHOCK
     Dosage: UNK (A 500?CC)
     Route: 065
  5. DAPAGLIFLOZIN. [Suspect]
     Active Substance: DAPAGLIFLOZIN
     Dosage: 10 MG, QD
     Route: 065
  6. TACROLIMUS. [Concomitant]
     Active Substance: TACROLIMUS
     Indication: IMMUNOSUPPRESSANT DRUG THERAPY
  7. METHYLPREDNISOLONE. [Suspect]
     Active Substance: METHYLPREDNISOLONE
     Indication: HEART TRANSPLANT
     Dosage: 500 MG, UNKNOWN (INTRAOPERATIVE)
     Route: 042
  8. METHYLPREDNISOLONE. [Suspect]
     Active Substance: METHYLPREDNISOLONE
     Indication: IMMUNOSUPPRESSANT DRUG THERAPY
  9. VASOPRESSIN. [Concomitant]
     Active Substance: VASOPRESSIN
     Indication: VASOPRESSIVE THERAPY
     Dosage: 2 UNITS/H
     Route: 065
  10. LACTATED RINGERS SOLUTION [Concomitant]
     Active Substance: CALCIUM CHLORIDE\POTASSIUM CHLORIDE\SODIUM CHLORIDE\SODIUM LACTATE
     Indication: MEAN ARTERIAL PRESSURE DECREASED
  11. LACTATED RINGERS SOLUTION [Concomitant]
     Active Substance: CALCIUM CHLORIDE\POTASSIUM CHLORIDE\SODIUM CHLORIDE\SODIUM LACTATE
     Indication: ACUTE KIDNEY INJURY
  12. DAPAGLIFLOZIN. [Suspect]
     Active Substance: DAPAGLIFLOZIN
     Indication: GLUCOSE TOLERANCE IMPAIRED
     Dosage: 5 MG, QD
     Route: 065
  13. MYCOPHENOLATE MOFETIL. [Concomitant]
     Active Substance: MYCOPHENOLATE MOFETIL
     Indication: HEART TRANSPLANT
     Dosage: 1000 MG, BID
     Route: 048
  14. EPINEPHRINE. [Concomitant]
     Active Substance: EPINEPHRINE
     Indication: REHABILITATION THERAPY
     Dosage: 0.05 MCG/KG/MIN
     Route: 065
  15. VANCOMYCIN [Concomitant]
     Active Substance: VANCOMYCIN
     Indication: ANTIBIOTIC PROPHYLAXIS
     Dosage: 1 G
     Route: 042
  16. CEFTRIAXONE. [Concomitant]
     Active Substance: CEFTRIAXONE
     Indication: ANTIBIOTIC PROPHYLAXIS
     Dosage: 1 G
     Route: 042
  17. NOREPINEPHRINE. [Concomitant]
     Active Substance: NOREPINEPHRINE
     Indication: VASOPRESSIVE THERAPY
     Dosage: 0.04 MCG/KG/MIN
     Route: 065

REACTIONS (2)
  - Euglycaemic diabetic ketoacidosis [Recovered/Resolved]
  - Product use in unapproved indication [Unknown]
